FAERS Safety Report 22379752 (Version 1)
Quarter: 2023Q2

REPORT INFORMATION
  Report Type: Spontaneous
  Country: US (occurrence: US)
  Receive Date: 20230529
  Receipt Date: 20230529
  Transmission Date: 20230722
  Serious: No
  Sender: FDA-Public Use
  Company Number: US-AMGEN-USASP2023090167

PATIENT
  Sex: Female

DRUGS (1)
  1. RIABNI [Suspect]
     Active Substance: RITUXIMAB-ARRX
     Indication: Lymphoma
     Dosage: UNK
     Route: 065

REACTIONS (1)
  - Adverse event [Not Recovered/Not Resolved]
